FAERS Safety Report 4360707-1 (Version None)
Quarter: 2004Q2

REPORT INFORMATION
  Report Type: 
  Country: None (occurrence: None)
  Receive Date: 20040519
  Receipt Date: 20040519
  Transmission Date: 20050107
  Serious: Yes (Other)
  Sender: FDA-Public Use
  Company Number: None

PATIENT
  Age: 52 Year
  Sex: Female
  Weight: 65 kg

DRUGS (2)
  1. AMPICILLIN SODIUM/SULBACTAM SODIUM [Suspect]
     Indication: GASTROINTESTINAL DISORDER
     Dosage: 1.5 GM IV
     Route: 042
  2. AMPICILLIN SODIUM/SULBACTAM SODIUM [Suspect]
     Indication: GRAFT VERSUS HOST DISEASE
     Dosage: 1.5 GM IV
     Route: 042

REACTIONS (3)
  - DYSPNOEA [None]
  - PRURITUS [None]
  - URTICARIA [None]
